FAERS Safety Report 14698302 (Version 1)
Quarter: 2018Q1

REPORT INFORMATION
  Report Type: Spontaneous
  Country: SE (occurrence: SE)
  Receive Date: 20180330
  Receipt Date: 20180330
  Transmission Date: 20180509
  Serious: Yes (Hospitalization)
  Sender: FDA-Public Use
  Company Number: SE-CONCORDIA PHARMACEUTICALS INC.-E2B_00010773

PATIENT
  Age: 53 Year
  Sex: Female

DRUGS (20)
  1. PREDNISOLONE. [Suspect]
     Active Substance: PREDNISOLONE
     Indication: PAIN
     Dates: start: 20180115
  2. CONCERTA [Suspect]
     Active Substance: METHYLPHENIDATE HYDROCHLORIDE
     Indication: PAIN
     Dosage: 30MG 1X1
     Route: 048
     Dates: start: 20180111, end: 20180227
  3. TAVEGYL [Concomitant]
     Active Substance: CLEMASTINE FUMARATE
     Dates: start: 20130605
  4. MOMETASONE [Concomitant]
     Active Substance: MOMETASONE
     Dates: start: 20110808
  5. SPIRONOLACTONE. [Concomitant]
     Active Substance: SPIRONOLACTONE
     Dates: start: 20140722
  6. TOP DENT FLUOR [Concomitant]
     Dates: start: 20170925
  7. FRAGMIN [Suspect]
     Active Substance: DALTEPARIN SODIUM
     Indication: DEEP VEIN THROMBOSIS
  8. SERTRALINE [Suspect]
     Active Substance: SERTRALINE HYDROCHLORIDE
     Indication: DEPRESSED MOOD
     Route: 048
     Dates: start: 20140306
  9. SUMATRIPTAN. [Concomitant]
     Active Substance: SUMATRIPTAN
     Dates: start: 20170105
  10. OXYCODONE [Concomitant]
     Active Substance: OXYCODONE
     Dates: start: 20131225
  11. FURIX [Concomitant]
     Active Substance: FUROSEMIDE
     Dates: start: 20130315
  12. OXYNORM [Concomitant]
     Active Substance: OXYCODONE HYDROCHLORIDE
     Dates: start: 20131226
  13. OMEPRAZOLE. [Concomitant]
     Active Substance: OMEPRAZOLE
     Dates: start: 20160425
  14. ALVEDON [Concomitant]
     Active Substance: ACETAMINOPHEN
     Dates: start: 20160727
  15. HIPREX [Concomitant]
     Active Substance: METHENAMINE HIPPURATE
     Dates: start: 20170715
  16. FRAGMIN [Suspect]
     Active Substance: DALTEPARIN SODIUM
     Indication: PULMONARY EMBOLISM
     Route: 058
     Dates: start: 2014, end: 201802
  17. SYMBICORT [Concomitant]
     Active Substance: BUDESONIDE\FORMOTEROL FUMARATE DIHYDRATE
     Dates: start: 20130605
  18. BRICANYL [Concomitant]
     Active Substance: TERBUTALINE SULFATE
     Dates: start: 20130717
  19. LIVOSTIN [Concomitant]
     Active Substance: LEVOCABASTINE HYDROCHLORIDE
     Dates: start: 20130605
  20. ALENDRONIC ACID [Concomitant]
     Active Substance: ALENDRONIC ACID
     Dates: start: 20180215

REACTIONS (1)
  - Abdominal wall haematoma [Not Recovered/Not Resolved]

NARRATIVE: CASE EVENT DATE: 20180224
